FAERS Safety Report 11426477 (Version 1)
Quarter: 2015Q3

REPORT INFORMATION
  Report Type: Spontaneous
  Country: US (occurrence: US)
  Receive Date: 20150821
  Receipt Date: 20150821
  Transmission Date: 20151125
  Serious: No
  Sender: FDA-Public Use
  Company Number: US-ELI_LILLY_AND_COMPANY-US200907006890

PATIENT
  Sex: Female

DRUGS (15)
  1. REGLAN [Concomitant]
     Active Substance: METOCLOPRAMIDE HYDROCHLORIDE
     Dosage: 100 MG, UNK
  2. HUMULIN 70/30 [Suspect]
     Active Substance: INSULIN HUMAN
     Dosage: 40 U, EACH EVENING
     Dates: start: 200901
  3. HUMULIN N [Suspect]
     Active Substance: INSULIN HUMAN
     Dosage: 60 U, EACH MORNING
     Dates: end: 200901
  4. LEVOXYL [Concomitant]
     Active Substance: LEVOTHYROXINE SODIUM
     Dosage: 100 MG, UNK
  5. NITROGLYCERINE [Concomitant]
     Active Substance: NITROGLYCERIN
     Dosage: UNK, AS NEEDED
  6. HUMULIN R [Suspect]
     Active Substance: INSULIN HUMAN
     Dosage: UNK, AS NEEDED
     Dates: end: 200901
  7. HUMULIN N [Suspect]
     Active Substance: INSULIN HUMAN
     Dosage: 40 U, EACH MORNING
  8. HUMULIN N [Suspect]
     Active Substance: INSULIN HUMAN
     Dosage: 20 U, EACH EVENING
  9. HUMULIN 70/30 [Suspect]
     Active Substance: INSULIN HUMAN
     Dosage: 40 U, EACH EVENING
     Dates: start: 200901
  10. HYDROCHLOROTHIAZIDE. [Concomitant]
     Active Substance: HYDROCHLOROTHIAZIDE
  11. HUMULIN 70/30 [Suspect]
     Active Substance: INSULIN HUMAN
     Dosage: 80 U, EACH MORNING
     Dates: start: 200901, end: 2009
  12. ENALAPRIL [Concomitant]
     Active Substance: ENALAPRIL
     Dosage: 5 MG, UNK
  13. LORAZEPAM. [Concomitant]
     Active Substance: LORAZEPAM
     Dosage: 1 MG, UNK
  14. HUMULIN 70/30 [Suspect]
     Active Substance: INSULIN HUMAN
     Dosage: 80 U, EACH MORNING
     Dates: start: 200901
  15. PLAVIX [Concomitant]
     Active Substance: CLOPIDOGREL BISULFATE

REACTIONS (5)
  - Visual impairment [Not Recovered/Not Resolved]
  - Tremor [Not Recovered/Not Resolved]
  - Hyperhidrosis [Not Recovered/Not Resolved]
  - Diabetes mellitus [Not Recovered/Not Resolved]
  - Hypertension [Not Recovered/Not Resolved]

NARRATIVE: CASE EVENT DATE: 2009
